FAERS Safety Report 8965198 (Version 1)
Quarter: 2012Q4

REPORT INFORMATION
  Report Type: 
  Country: US (occurrence: US)
  Receive Date: 20121213
  Receipt Date: 20121213
  Transmission Date: 20130627
  Serious: No
  Sender: FDA-Public Use
  Company Number: US-BRISTOL-MYERS SQUIBB COMPANY-16496937

PATIENT
  Age: 51 Year
  Sex: Female

DRUGS (1)
  1. IXEMPRA [Suspect]
     Dosage: No of inf: 3
     Dates: start: 20120201

REACTIONS (3)
  - Fatigue [Unknown]
  - Neuropathy peripheral [Unknown]
  - Dizziness [Unknown]
